FAERS Safety Report 20288697 (Version 1)
Quarter: 2022Q1

REPORT INFORMATION
  Report Type: Spontaneous
  Country: JP (occurrence: JP)
  Receive Date: 20220104
  Receipt Date: 20220104
  Transmission Date: 20220423
  Serious: Yes (Other)
  Sender: FDA-Public Use
  Company Number: JP-MTPC-MTPE2021-0032548

PATIENT
  Age: 80 Year
  Sex: Female

DRUGS (6)
  1. EDARAVONE [Suspect]
     Active Substance: EDARAVONE
     Dosage: 30 MILLIGRAM, BID
     Route: 065
  2. NOVASTAN [Suspect]
     Active Substance: ARGATROBAN
     Dosage: 60 MILLIGRAM, QD
     Route: 065
  3. NOVASTAN [Suspect]
     Active Substance: ARGATROBAN
     Dosage: 20 MILLIGRAM, QD
  4. CLOPIDOGREL [Concomitant]
     Active Substance: CLOPIDOGREL BISULFATE
     Dosage: 75 MILLIGRAM, QD
     Route: 065
  5. ASPIRIN [Concomitant]
     Active Substance: ASPIRIN
     Dosage: 100 MILLIGRAM, QD
     Route: 065
  6. DEXTRAN SULFATE SODIUM [Concomitant]
     Active Substance: DEXTRAN SULFATE SODIUM
     Dosage: 500 MILLILITER, QD

REACTIONS (3)
  - Paresis [Not Recovered/Not Resolved]
  - Depressed level of consciousness [Recovering/Resolving]
  - Decreased activity [Recovering/Resolving]
